FAERS Safety Report 13744331 (Version 1)
Quarter: 2017Q3

REPORT INFORMATION
  Report Type: Spontaneous
  Country: SE (occurrence: SE)
  Receive Date: 20170712
  Receipt Date: 20170712
  Transmission Date: 20171127
  Serious: Yes (Other)
  Sender: FDA-Public Use
  Company Number: PHHY2017SE096857

PATIENT
  Age: 89 Year
  Sex: Female

DRUGS (2)
  1. HALOPERIDOL. [Suspect]
     Active Substance: HALOPERIDOL
     Indication: NAUSEA
     Dosage: UNK
     Route: 065
     Dates: start: 2005
  2. METFORMIN [Suspect]
     Active Substance: METFORMIN HYDROCHLORIDE
     Indication: DIABETES MELLITUS
     Route: 065

REACTIONS (3)
  - Glycosylated haemoglobin increased [Unknown]
  - Renal impairment [Unknown]
  - Nausea [Not Recovered/Not Resolved]
